FAERS Safety Report 5247550-6 (Version None)
Quarter: 2007Q1

REPORT INFORMATION
  Report Type: 
  Country: None (occurrence: None)
  Receive Date: 20070227
  Receipt Date: 20070214
  Transmission Date: 20070707
  Serious: Yes (Hospitalization)
  Sender: FDA-Public Use
  Company Number: PHBS2007GR02937

PATIENT
  Age: 76 Year
  Sex: Female

DRUGS (2)
  1. STALEVO 100 [Suspect]
     Dosage: 50 MG, QID
  2. AMBILIFY [Concomitant]

REACTIONS (2)
  - ARTERIAL LIGATION [None]
  - THROMBOPHLEBITIS [None]
